FAERS Safety Report 25882662 (Version 1)
Quarter: 2025Q4

REPORT INFORMATION
  Report Type: Spontaneous
  Country: US (occurrence: US)
  Receive Date: 20251006
  Receipt Date: 20251006
  Transmission Date: 20260118
  Serious: No
  Sender: ROCHE
  Company Number: US-ROCHE-10000396312

PATIENT
  Sex: Female

DRUGS (2)
  1. ACTEMRA [Suspect]
     Active Substance: TOCILIZUMAB
     Indication: Product used for unknown indication
     Route: 058
  2. TYENNE [Suspect]
     Active Substance: TOCILIZUMAB-AAZG
     Indication: Product used for unknown indication
     Route: 065

REACTIONS (5)
  - Gastrointestinal disorder [Unknown]
  - Dysphagia [Unknown]
  - Abdominal discomfort [Unknown]
  - Device issue [Unknown]
  - Intentional product misuse [Unknown]
